FAERS Safety Report 16790948 (Version 1)
Quarter: 2019Q3

REPORT INFORMATION
  Report Type: Spontaneous
  Country: US (occurrence: US)
  Receive Date: 20190910
  Receipt Date: 20190910
  Transmission Date: 20191005
  Serious: Yes (Other)
  Sender: FDA-Public Use
  Company Number: US-BAYER-2019-165397

PATIENT
  Age: 63 Year
  Sex: Male

DRUGS (3)
  1. ACETYLSALICYLIC ACID (CARDIO) [Suspect]
     Active Substance: ASPIRIN
     Dosage: UNK
  2. TICAGRELOR. [Interacting]
     Active Substance: TICAGRELOR
  3. HEPARIN [Interacting]
     Active Substance: HEPARIN SODIUM

REACTIONS (3)
  - Gastrointestinal haemorrhage [None]
  - Labelled drug-drug interaction medication error [None]
  - Duodenitis [None]
